FAERS Safety Report 8362393 (Version 2)
Quarter: 2013Q1

REPORT INFORMATION
  Report Type: Report from Study
  Country: US (occurrence: US)
  Receive Date: 20120130
  Receipt Date: 20130118
  Transmission Date: 20140127
  Serious: Yes (Other)
  Sender: FDA-Public Use
  Company Number: US-PFIZER INC-2011160878

PATIENT
  Sex: Male

DRUGS (2)
  1. LIPITOR [Suspect]
     Dosage: UNK
  2. NEURONTIN [Suspect]
     Dosage: UNK

REACTIONS (4)
  - Hypoacusis [Unknown]
  - Multiple sclerosis [Unknown]
  - Muscular dystrophy [Unknown]
  - Speech disorder [Unknown]
